FAERS Safety Report 11622775 (Version 1)
Quarter: 2015Q4

REPORT INFORMATION
  Report Type: Spontaneous
  Country: US (occurrence: None)
  Receive Date: 20151009
  Receipt Date: 20151009
  Transmission Date: 20160304
  Serious: Yes (Other)
  Sender: FDA-Public Use
  Company Number: None

PATIENT
  Age: 47 Year
  Sex: Female
  Weight: 90.72 kg

DRUGS (4)
  1. LEVOTHROID [Suspect]
     Active Substance: LEVOTHYROXINE SODIUM
     Indication: HYPOTHYROIDISM
     Route: 048
  2. LEVOTHROID [Suspect]
     Active Substance: LEVOTHYROXINE SODIUM
     Indication: OBESITY
     Route: 048
  3. LEVOTHYROXINE 100 MCG [Suspect]
     Active Substance: LEVOTHYROXINE
     Indication: OBESITY
  4. LEVOTHROID [Suspect]
     Active Substance: LEVOTHYROXINE SODIUM
     Indication: FATIGUE
     Route: 048

REACTIONS (7)
  - Diarrhoea [None]
  - Constipation [None]
  - Weight increased [None]
  - Feeling abnormal [None]
  - Fatigue [None]
  - Mental impairment [None]
  - Alopecia [None]

NARRATIVE: CASE EVENT DATE: 20140922
